FAERS Safety Report 21977889 (Version 1)
Quarter: 2023Q1

REPORT INFORMATION
  Report Type: Spontaneous
  Country: US (occurrence: US)
  Receive Date: 20230210
  Receipt Date: 20230210
  Transmission Date: 20230418
  Serious: Yes (Life-Threatening, Hospitalization)
  Sender: FDA-Public Use
  Company Number: US-MYLANLABS-2023M1013581

PATIENT
  Age: 15 Year
  Sex: Male

DRUGS (2)
  1. IBUPROFEN [Suspect]
     Active Substance: IBUPROFEN
     Indication: Product used for unknown indication
     Dosage: 300 DOSAGE FORM, TOTAL (INGESTED THREE HUNDRED 400MG TABLETS (1666 MG/KG))
     Route: 048
  2. BENADRYL [Suspect]
     Active Substance: DIPHENHYDRAMINE HYDROCHLORIDE
     Indication: Product used for unknown indication
     Dosage: 14 DOSAGE FORM, TOTAL ((INGESTED FOURTEEN 25MG TABLETS))
     Route: 048

REACTIONS (11)
  - Acute respiratory distress syndrome [Unknown]
  - Intentional product misuse [Unknown]
  - Hyperkalaemia [Unknown]
  - Hypocalcaemia [Unknown]
  - Electrolyte imbalance [Unknown]
  - Pulmonary sequestration [Unknown]
  - Toxicity to various agents [Unknown]
  - Overdose [Unknown]
  - Metabolic acidosis [Unknown]
  - Renal failure [Unknown]
  - Leukopenia [Unknown]
